FAERS Safety Report 9337784 (Version 4)
Quarter: 2013Q3

REPORT INFORMATION
  Report Type: Spontaneous
  Country: CA (occurrence: CA)
  Receive Date: 20130607
  Receipt Date: 20130808
  Transmission Date: 20140515
  Serious: Yes (Death, Hospitalization, Other)
  Sender: FDA-Public Use
  Company Number: CA-BAXTER-2013BAX020420

PATIENT
  Age: 59 Year
  Sex: Male

DRUGS (2)
  1. DIANEAL PD4 SOLUTION WITH 1.5% DEXTROSE AND 2.5 MEQ/L CALCIUM [Suspect]
     Indication: PERITONEAL DIALYSIS
     Route: 033
     Dates: end: 20130713
  2. EXTRANEAL [Suspect]
     Indication: PERITONEAL DIALYSIS
     Route: 033
     Dates: end: 20130713

REACTIONS (10)
  - Osteomyelitis [Fatal]
  - Impaired healing [Fatal]
  - Renal failure [Unknown]
  - Poor peripheral circulation [Recovering/Resolving]
  - Limb injury [Recovering/Resolving]
  - Gangrene [Recovering/Resolving]
  - Venous occlusion [Recovering/Resolving]
  - Asthenia [Recovering/Resolving]
  - Infection [Recovering/Resolving]
  - Blood potassium decreased [Recovering/Resolving]
